FAERS Safety Report 15838055 (Version 1)
Quarter: 2019Q1

REPORT INFORMATION
  Report Type: Spontaneous
  Country: US (occurrence: US)
  Receive Date: 20190117
  Receipt Date: 20190117
  Transmission Date: 20190417
  Serious: Yes (Other)
  Sender: FDA-Public Use
  Company Number: US-ALLERGAN-1902175US

PATIENT
  Age: 15 Year
  Sex: Male

DRUGS (2)
  1. BUPROPION. [Suspect]
     Active Substance: BUPROPION
     Indication: INTENTIONAL OVERDOSE
     Dosage: 60 TABLES (300 MG)
     Route: 048
  2. VILAZODONE HCL UNK [Suspect]
     Active Substance: VILAZODONE HYDROCHLORIDE
     Indication: INTENTIONAL OVERDOSE
     Dosage: 30 TABLES (20 MG)
     Route: 048

REACTIONS (5)
  - Memory impairment [Recovering/Resolving]
  - Ischaemic cerebral infarction [Unknown]
  - Intentional overdose [Unknown]
  - Serotonin syndrome [Unknown]
  - Partial seizures [Unknown]
